FAERS Safety Report 14254528 (Version 1)
Quarter: 2017Q4

REPORT INFORMATION
  Report Type: Spontaneous
  Country: US (occurrence: US)
  Receive Date: 20171206
  Receipt Date: 20171206
  Transmission Date: 20180321
  Serious: No
  Sender: FDA-Public Use
  Company Number: US-PFIZER INC-2016245098

PATIENT
  Age: 63 Year
  Sex: Female

DRUGS (2)
  1. MEROPENEM. [Suspect]
     Active Substance: MEROPENEM
     Dosage: UNK
  2. COLISTIN [Suspect]
     Active Substance: COLISTIN
     Dosage: UNK

REACTIONS (1)
  - Drug hypersensitivity [Unknown]
